FAERS Safety Report 6054962-X (Version None)
Quarter: 2009Q1

REPORT INFORMATION
  Report Type: 
  Country: None (occurrence: None)
  Receive Date: 20090123
  Receipt Date: 20090105
  Transmission Date: 20090719
  Serious: Yes (Death)
  Sender: FDA-Public Use
  Company Number: CFNT-309

PATIENT
  Age: 59 Year
  Sex: Female

DRUGS (1)
  1. MEIACT MS (CEFDITOREN PIVOXIL) [Suspect]
     Dates: start: 20070401, end: 20070401

REACTIONS (1)
  - HEPATITIS FULMINANT [None]
